FAERS Safety Report 6646948-9 (Version None)
Quarter: 2010Q1

REPORT INFORMATION
  Report Type: 
  Country: None (occurrence: None)
  Receive Date: 20100323
  Receipt Date: 20100315
  Transmission Date: 20100710
  Serious: Yes (Hospitalization)
  Sender: FDA-Public Use
  Company Number: FR-JNJFOC-20100304515

PATIENT
  Sex: Female

DRUGS (12)
  1. DURAGESIC-100 [Suspect]
     Indication: DRUG USE FOR UNKNOWN INDICATION
     Route: 062
  2. KETOPROFEN [Interacting]
     Indication: DRUG USE FOR UNKNOWN INDICATION
     Route: 030
  3. STILNOX [Interacting]
     Indication: DRUG USE FOR UNKNOWN INDICATION
     Route: 048
  4. LEXOMIL [Interacting]
     Indication: DRUG USE FOR UNKNOWN INDICATION
     Route: 048
  5. LAMALINE [Interacting]
     Indication: DRUG USE FOR UNKNOWN INDICATION
     Route: 048
     Dates: end: 20100108
  6. ACTISKENAN [Interacting]
     Indication: DRUG USE FOR UNKNOWN INDICATION
     Route: 048
  7. DEROXAT [Concomitant]
     Route: 065
  8. SINEMET [Concomitant]
     Route: 065
  9. REQUIP [Concomitant]
     Route: 065
  10. DILTIAZEM HCL [Concomitant]
     Route: 065
  11. LEVOTHYROX [Concomitant]
     Route: 065
  12. PARIET [Concomitant]
     Route: 065

REACTIONS (7)
  - CONFUSIONAL STATE [None]
  - CONSTIPATION [None]
  - DRUG INTERACTION [None]
  - EXTRAPYRAMIDAL DISORDER [None]
  - MALAISE [None]
  - NIGHTMARE [None]
  - ORTHOSTATIC HYPOTENSION [None]
